FAERS Safety Report 5280810-1 (Version None)
Quarter: 2007Q1

REPORT INFORMATION
  Report Type: 
  Country: None (occurrence: None)
  Receive Date: 20070329
  Receipt Date: 20070321
  Transmission Date: 20070707
  Serious: Yes (Hospitalization)
  Sender: FDA-Public Use
  Company Number: AR-BRISTOL-MYERS SQUIBB COMPANY-13729975

PATIENT
  Age: 19 Year
  Sex: Male
  Weight: 90 kg

DRUGS (6)
  1. CYCLOPHOSPHAMIDE [Suspect]
     Indication: LUPUS NEPHRITIS
     Route: 042
     Dates: start: 20070110, end: 20070110
  2. FOLIC ACID [Concomitant]
     Dates: start: 20060101
  3. RANITIDINE [Concomitant]
     Dates: start: 20041101
  4. ENALAPRIL MALEATE [Concomitant]
     Dates: start: 20070116
  5. LOSARTAN POSTASSIUM [Concomitant]
     Dates: start: 20070116
  6. ASPIRIN [Concomitant]
     Dates: start: 20050101

REACTIONS (1)
  - CHOLECYSTITIS ACUTE [None]
